FAERS Safety Report 8671858 (Version 2)
Quarter: 2012Q4

REPORT INFORMATION
  Report Type: 
  Country: US (occurrence: US)
  Receive Date: 20120718
  Receipt Date: 20120904
  Transmission Date: 20130627
  Serious: Yes (Hospitalization, Other)
  Sender: FDA-Public Use
  Company Number: US-PFIZER INC-2012169735

PATIENT
  Age: 45 Year
  Sex: Female

DRUGS (3)
  1. LYRICA [Suspect]
     Indication: PAIN
     Dosage: 75 mg, 3x/day
     Route: 048
     Dates: start: 20120601, end: 20120711
  2. TRAMADOL HCL [Interacting]
     Indication: PAIN
     Dosage: UNK
  3. GABAPENTIN [Suspect]
     Dosage: UNK

REACTIONS (2)
  - Drug interaction [Unknown]
  - Convulsion [Recovered/Resolved]
